FAERS Safety Report 7459443-4 (Version None)
Quarter: 2011Q2

REPORT INFORMATION
  Report Type: 
  Country: None (occurrence: None)
  Receive Date: 20110505
  Receipt Date: 20110426
  Transmission Date: 20111010
  Serious: Yes (Hospitalization, Other)
  Sender: FDA-Public Use
  Company Number: US-JNJFOC-20110412148

PATIENT
  Sex: Female
  Weight: 62.6 kg

DRUGS (4)
  1. THYROID TAB [Concomitant]
     Indication: HYPOTHYROIDISM
     Dosage: EVERY OTHER NIGHT
     Route: 048
  2. LEVAQUIN [Suspect]
     Indication: LOCALISED INFECTION
     Route: 048
  3. AMLODIPINE BESILATE [Concomitant]
     Indication: HYPERTENSION
     Route: 048
  4. THYROID TAB [Concomitant]
     Route: 048

REACTIONS (3)
  - DIZZINESS [None]
  - ABDOMINAL DISCOMFORT [None]
  - RASH PRURITIC [None]
